FAERS Safety Report 12390719 (Version 3)
Quarter: 2016Q4

REPORT INFORMATION
  Report Type: Spontaneous
  Country: CA (occurrence: CA)
  Receive Date: 20160520
  Receipt Date: 20161102
  Transmission Date: 20170207
  Serious: Yes (Other)
  Sender: FDA-Public Use
  Company Number: CA-PFIZER INC-2014234447

PATIENT
  Age: 55 Year
  Sex: Female

DRUGS (7)
  1. PREDNISONE. [Suspect]
     Active Substance: PREDNISONE
     Indication: RHEUMATOID ARTHRITIS
     Dosage: 5 MG, 1X/DAY
     Route: 048
     Dates: end: 201507
  2. PREDNISONE. [Suspect]
     Active Substance: PREDNISONE
     Dosage: 2 MG, DAILY
     Dates: start: 2016
  3. XELJANZ [Suspect]
     Active Substance: TOFACITINIB CITRATE
     Indication: RHEUMATOID ARTHRITIS
     Dosage: 5 MG, 2X/DAY
     Route: 048
     Dates: start: 20140816, end: 20141101
  4. XELJANZ [Suspect]
     Active Substance: TOFACITINIB CITRATE
     Dosage: 5 MG, 2X/DAY
     Route: 048
  5. PREDNISONE. [Suspect]
     Active Substance: PREDNISONE
     Dosage: UNK
     Dates: start: 20160616
  6. PREDNISONE. [Suspect]
     Active Substance: PREDNISONE
     Dosage: 3 MG, 1X/DAY
     Route: 048
  7. PREDNISONE. [Suspect]
     Active Substance: PREDNISONE
     Dosage: 2 MG, 1X/DAY
     Dates: end: 201605

REACTIONS (16)
  - Nasopharyngitis [Recovering/Resolving]
  - Stress fracture [Not Recovered/Not Resolved]
  - Influenza like illness [Not Recovered/Not Resolved]
  - Rib fracture [Not Recovered/Not Resolved]
  - Pain [Unknown]
  - Body temperature increased [Not Recovered/Not Resolved]
  - Condition aggravated [Unknown]
  - Pain in extremity [Not Recovered/Not Resolved]
  - Fatigue [Not Recovered/Not Resolved]
  - Flatulence [Unknown]
  - Asthenia [Not Recovered/Not Resolved]
  - Sensitivity to weather change [Not Recovered/Not Resolved]
  - Drug ineffective [Unknown]
  - Condition aggravated [Not Recovered/Not Resolved]
  - Swelling [Not Recovered/Not Resolved]
  - Bone density abnormal [Not Recovered/Not Resolved]

NARRATIVE: CASE EVENT DATE: 201408
